FAERS Safety Report 4782656-7 (Version None)
Quarter: 2005Q3

REPORT INFORMATION
  Report Type: 
  Country: None (occurrence: None)
  Receive Date: 20050929
  Receipt Date: 20050515
  Transmission Date: 20060218
  Serious: No
  Sender: FDA-Public Use
  Company Number: 407572

PATIENT
  Sex: Male

DRUGS (1)
  1. COREG [Suspect]
     Indication: HYPERTENSION
     Route: 048

REACTIONS (1)
  - RAYNAUD'S PHENOMENON [None]
